FAERS Safety Report 7878734-6 (Version None)
Quarter: 2011Q4

REPORT INFORMATION
  Report Type: 
  Country: None (occurrence: None)
  Receive Date: 20111027
  Receipt Date: 20111017
  Transmission Date: 20120403
  Serious: Yes (Hospitalization)
  Sender: FDA-Public Use
  Company Number: 1000022129

PATIENT
  Age: 69 Year
  Sex: Male

DRUGS (13)
  1. AMIODARONE HCL [Suspect]
     Indication: ATRIAL FIBRILLATION
     Dosage: 200 MG (200 MG, 1 IN 1 D), ORAL
     Route: 048
     Dates: start: 20060101, end: 20100109
  2. OXAZEPAM [Concomitant]
  3. SYNTHROID [Concomitant]
  4. ESCITALOPRAM [Suspect]
     Indication: DEPRESSION
     Dosage: DAILY DOSE NOT REPORTED, ORAL
     Route: 048
     Dates: end: 20100109
  5. PLAVIX [Concomitant]
  6. GLUCONORM (REPAGLINIDE) [Concomitant]
  7. LASIX [Concomitant]
  8. VITAMIN D (COLECALCIFEROL) [Concomitant]
  9. ASPIRIN [Concomitant]
  10. ATIVAN [Concomitant]
  11. LIPITOR [Concomitant]
  12. METFORMIN HCL [Concomitant]
  13. MICARDIS [Concomitant]

REACTIONS (3)
  - MOBILITY DECREASED [None]
  - TREMOR [None]
  - FALL [None]
